FAERS Safety Report 25237727 (Version 2)
Quarter: 2025Q3

REPORT INFORMATION
  Report Type: Spontaneous
  Country: US (occurrence: US)
  Receive Date: 20250425
  Receipt Date: 20250827
  Transmission Date: 20251020
  Serious: No
  Sender: UCB
  Company Number: US-UCBSA-2025005980

PATIENT
  Sex: Male

DRUGS (1)
  1. RYSTIGGO [Suspect]
     Active Substance: ROZANOLIXIZUMAB-NOLI
     Indication: Myasthenia gravis
     Dates: start: 20250120

REACTIONS (4)
  - Incorrect dose administered [Unknown]
  - Product use complaint [Unknown]
  - Therapy interrupted [Unknown]
  - Inability to afford medication [Unknown]
